FAERS Safety Report 9678110 (Version 2)
Quarter: 2013Q4

REPORT INFORMATION
  Report Type: Report from Study
  Country: US (occurrence: US)
  Receive Date: 20131108
  Receipt Date: 20131120
  Transmission Date: 20140711
  Serious: Yes (Hospitalization, Other)
  Sender: FDA-Public Use
  Company Number: US-VERTEX PHARMACEUTICALS INC-2013-010843

PATIENT
  Age: 72 Year
  Sex: Female
  Weight: 71.2 kg

DRUGS (8)
  1. VX-950 (TELAPREVIR) [Suspect]
     Indication: HEPATITIS C
     Dosage: 750 MG, TID
     Route: 048
     Dates: start: 20131018, end: 20131111
  2. RIBAVIRIN [Suspect]
     Indication: HEPATITIS C
     Dosage: 1 TAB, BID
     Dates: start: 20131018, end: 20131111
  3. PEGINTRON [Suspect]
     Indication: HEPATITIS C
     Dosage: 120 ?G, UNK
     Route: 058
     Dates: start: 20131018, end: 20131111
  4. ASA [Concomitant]
     Dosage: 81 MG, QD
  5. NORVASC [Concomitant]
     Indication: BLOOD PRESSURE
     Dosage: 10 MG, QD
  6. CALCIUM [Concomitant]
     Indication: NUTRITIONAL SUPPLEMENTATION
     Dosage: 1200 MG, QD
  7. FUROSEMIDE [Concomitant]
     Indication: FLUID RETENTION
     Dosage: 20 MG, QD
  8. SPIRONOLACTONE [Concomitant]
     Dosage: 50 MG, QD

REACTIONS (15)
  - Pain in extremity [Recovered/Resolved]
  - Abdominal distension [Recovered/Resolved]
  - Blood potassium decreased [Recovered/Resolved]
  - Oedema peripheral [Recovered/Resolved]
  - Oral mucosal blistering [Not Recovered/Not Resolved]
  - Weight increased [Recovered/Resolved]
  - Feeling cold [Not Recovered/Not Resolved]
  - Cardiac flutter [Not Recovered/Not Resolved]
  - Cough [Not Recovered/Not Resolved]
  - Swelling face [Recovered/Resolved]
  - Nausea [Not Recovered/Not Resolved]
  - Rash pruritic [Recovered/Resolved]
  - Rash papular [Recovered/Resolved]
  - Erythema [Recovered/Resolved]
  - Skin exfoliation [Not Recovered/Not Resolved]
